FAERS Safety Report 16138668 (Version 1)
Quarter: 2019Q2

REPORT INFORMATION
  Report Type: Spontaneous
  Country: FR (occurrence: FR)
  Receive Date: 20190401
  Receipt Date: 20190401
  Transmission Date: 20190711
  Serious: Yes (Hospitalization)
  Sender: FDA-Public Use
  Company Number: FR-SUN PHARMACEUTICAL INDUSTRIES LTD-2019RR-203492

PATIENT
  Age: 66 Year
  Sex: Male

DRUGS (14)
  1. PANTOPRAZOLE [Suspect]
     Active Substance: PANTOPRAZOLE
     Indication: GASTROINTESTINAL HAEMORRHAGE
     Dosage: 8 MILLIGRAM, 1DOSE/1HOUR
     Route: 042
     Dates: start: 20180202, end: 20180205
  2. TAZOCILLINE 4 G/500 MG, POUDRE POUR SOLUTION POUR PERFUSION [Suspect]
     Active Substance: PIPERACILLIN SODIUM\TAZOBACTAM SODIUM
     Indication: INTERVERTEBRAL DISCITIS
     Dosage: 3 DOSAGE FORM, DAILY
     Route: 042
     Dates: start: 20180121, end: 20180128
  3. CALCIPARINE [Suspect]
     Active Substance: HEPARIN CALCIUM
     Indication: EMBOLISM VENOUS
     Dosage: 20000 INTERNATIONAL UNIT, UNK
     Route: 058
     Dates: start: 20180214
  4. RIFADINE 300 MG, GELULE [Suspect]
     Active Substance: RIFAMPIN
     Indication: INTERVERTEBRAL DISCITIS
     Dosage: 2-0-2
     Route: 048
     Dates: start: 20180129, end: 20180207
  5. OFLOCET [Suspect]
     Active Substance: OFLOXACIN
     Indication: URINARY TRACT INFECTION
     Dosage: NON RENSEIGNEE ()
     Route: 048
     Dates: start: 20180109, end: 20180116
  6. MOVICOL [Suspect]
     Active Substance: POLYETHYLENE GLYCOL 3350\POTASSIUM CHLORIDE\SODIUM BICARBONATE\SODIUM CHLORIDE
     Indication: CONSTIPATION
     Dosage: 1-0-0
     Route: 048
     Dates: end: 20180214
  7. DUOTRAV 40 MICROGRAMMES/ML + 5 MG/ML, COLLYRE EN SOLUTION [Suspect]
     Active Substance: TIMOLOL\TRAVOPROST
     Indication: GLAUCOMA
     Dosage: 1 GOUTTE MATIN ET SOIR (2 YEUX)
     Route: 047
     Dates: start: 20180122, end: 20180214
  8. TAVANIC 500 MG, COMPRIME PELLICULE SECABLE [Suspect]
     Active Substance: LEVOFLOXACIN
     Indication: INTERVERTEBRAL DISCITIS
     Dosage: 1-0-1
     Route: 048
     Dates: start: 20180129, end: 20180205
  9. LANSOPRAZOLE MYLAN [Suspect]
     Active Substance: LANSOPRAZOLE
     Indication: PEPTIC ULCER
     Dosage: 30 MILLIGRAM, DAILY
     Route: 048
     Dates: start: 20180206, end: 20180214
  10. HEPARINE SODIQUE PANPHARMA [Suspect]
     Active Substance: HEPARIN SODIUM
     Indication: EMBOLISM VENOUS
     Dosage: PLUSIEURS POSOLOGIES DE 60000 UI/JOUR A 25000 UI/JOUR
     Route: 058
     Dates: start: 20180129, end: 20180214
  11. LASILIX SPECIAL 250 MG/25 ML, SOLUTION INJECTABLE EN AMPOULE [Suspect]
     Active Substance: FUROSEMIDE
     Indication: INTERVERTEBRAL DISCITIS
     Dosage: 80 MILLIGRAM, UNK
     Route: 042
     Dates: start: 20180203, end: 20180205
  12. LOVENOX [Suspect]
     Active Substance: ENOXAPARIN SODIUM
     Indication: EMBOLISM VENOUS
     Dosage: 4000 INTERNATIONAL UNIT, UNK
     Route: 058
     Dates: start: 20180118, end: 20180129
  13. ERYTHROMYCINE [Suspect]
     Active Substance: ERYTHROMYCIN
     Indication: INTERVERTEBRAL DISCITIS
     Dosage: 250 MILLIGRAM, UNK
     Route: 042
     Dates: start: 20180202, end: 20180202
  14. VANCOMYCINE SANDOZ 500 MG, POUDRE POUR SOLUTION POUR PERFUSION [Suspect]
     Active Substance: VANCOMYCIN HYDROCHLORIDE
     Indication: INTERVERTEBRAL DISCITIS
     Dosage: 3500 MILLIGRAM, DAILY
     Route: 048
     Dates: start: 20180121, end: 20180124

REACTIONS (1)
  - Drug reaction with eosinophilia and systemic symptoms [Recovered/Resolved]

NARRATIVE: CASE EVENT DATE: 20180204
